FAERS Safety Report 24881490 (Version 1)
Quarter: 2025Q1

REPORT INFORMATION
  Report Type: Spontaneous
  Country: GB (occurrence: GB)
  Receive Date: 20250124
  Receipt Date: 20250124
  Transmission Date: 20250409
  Serious: Yes (Hospitalization, Other)
  Sender: TEVA
  Company Number: None

PATIENT
  Age: 32 Year
  Sex: Female
  Weight: 96 kg

DRUGS (8)
  1. CLINDAMYCIN [Suspect]
     Active Substance: CLINDAMYCIN
     Indication: Product used for unknown indication
     Route: 065
     Dates: start: 20241213, end: 20241216
  2. OMEPRAZOLE [Concomitant]
     Active Substance: OMEPRAZOLE
     Indication: Endometriosis
     Dates: start: 20230401
  3. TRETINOIN [Suspect]
     Active Substance: TRETINOIN
     Indication: Product used for unknown indication
     Route: 065
     Dates: start: 20241213, end: 20241216
  4. FOLIC ACID [Concomitant]
     Active Substance: FOLIC ACID
     Indication: Endometriosis
     Dates: start: 20210501
  5. GONAL-F [Concomitant]
     Active Substance: FOLLITROPIN
     Indication: Oocyte harvest
     Dates: start: 20241128, end: 20241211
  6. NAPROXEN [Concomitant]
     Active Substance: NAPROXEN
     Indication: Endometriosis
     Dates: start: 20230401
  7. CHORIOGONADOTROPIN ALFA [Concomitant]
     Active Substance: CHORIOGONADOTROPIN ALFA
     Indication: Oocyte harvest
     Dates: start: 20241211
  8. TRIPTORELIN [Concomitant]
     Active Substance: TRIPTORELIN
     Indication: Endometritis
     Dates: start: 20240820

REACTIONS (7)
  - Musculoskeletal chest pain [Unknown]
  - Abdominal distension [Recovered/Resolved]
  - Speech disorder [Unknown]
  - Vomiting [Recovered/Resolved]
  - Gastrointestinal pain [Recovered/Resolved with Sequelae]
  - Abdominal pain upper [Recovering/Resolving]
  - Dyspnoea [Recovered/Resolved]

NARRATIVE: CASE EVENT DATE: 20241214
